FAERS Safety Report 8503925-0 (Version None)
Quarter: 2012Q3

REPORT INFORMATION
  Report Type: 
  Country: None (occurrence: None)
  Receive Date: 20120711
  Receipt Date: 20120711
  Transmission Date: 20120928
  Serious: Yes (Hospitalization)
  Sender: FDA-Public Use
  Company Number: FR-GILEAD-2011-0047681

PATIENT
  Sex: Female

DRUGS (9)
  1. EMTRICITABINE/TENOFOVIR DISOPROXIL FUMARATE [Suspect]
     Indication: HIV INFECTION
     Dosage: 1 DF, QD
     Route: 048
     Dates: start: 20100713, end: 20111108
  2. MARAVIROC [Concomitant]
     Indication: HIV INFECTION
     Dosage: 300 MG, QD
     Route: 048
     Dates: start: 20100713, end: 20111108
  3. COMBIVIR [Concomitant]
     Indication: PROPHYLAXIS
     Dosage: 1 DF, BID
     Dates: start: 20120319
  4. NORVIR [Concomitant]
     Indication: HIV INFECTION
     Dosage: 100 MG, QD
     Route: 048
     Dates: start: 20100713, end: 20111108
  5. KALETRA [Concomitant]
     Indication: PROPHYLAXIS
     Dosage: 2 DF, BID
     Route: 048
     Dates: start: 20120220
  6. ABACAVIR SULFATE/LAMIVUDINE [Concomitant]
     Indication: PROPHYLAXIS
     Dosage: 1 DF, QD
     Route: 048
     Dates: start: 20120305, end: 20120319
  7. ISENTRESS [Concomitant]
     Indication: HIV INFECTION
     Dosage: 800 MG, QD
     Route: 048
     Dates: start: 20100713, end: 20111108
  8. PREZISTA [Concomitant]
     Indication: HIV INFECTION
     Dosage: 800 MG, QD
     Route: 048
     Dates: start: 20100713, end: 20111108
  9. DIPROSONE                          /00008504/ [Concomitant]
     Indication: ECZEMA
     Dosage: 0.05 %, QD
     Route: 061
     Dates: start: 20090325

REACTIONS (2)
  - CHOLESTASIS OF PREGNANCY [None]
  - PREGNANCY [None]
